FAERS Safety Report 17984112 (Version 1)
Quarter: 2020Q3

REPORT INFORMATION
  Report Type: Report from Study
  Country: IT (occurrence: IT)
  Receive Date: 20200706
  Receipt Date: 20200706
  Transmission Date: 20201103
  Serious: Yes (Other)
  Sender: FDA-Public Use
  Company Number: IT-PFIZER INC-2020255089

PATIENT
  Age: 44 Year
  Sex: Female

DRUGS (8)
  1. XANAX [Suspect]
     Active Substance: ALPRAZOLAM
     Dosage: 5 MG, SINGLE
     Dates: start: 20200526, end: 20200526
  2. FLUTIFORMO [Concomitant]
     Active Substance: FLUTICASONE PROPIONATE\FORMOTEROL FUMARATE
  3. MINIAS [Suspect]
     Active Substance: LORMETAZEPAM
     Dosage: 20 ML, SINGLE
     Dates: start: 20200526, end: 20200526
  4. EFEXOR [Concomitant]
     Active Substance: VENLAFAXINE HYDROCHLORIDE
     Dosage: 112.5 MG
  5. COBAFORTE [Concomitant]
  6. IVABRADINE [Concomitant]
     Active Substance: IVABRADINE
  7. TAVOR (LORAZEPAM) [Concomitant]
     Active Substance: LORAZEPAM
  8. NORVASC [Concomitant]
     Active Substance: AMLODIPINE BESYLATE

REACTIONS (2)
  - Drug abuse [Recovering/Resolving]
  - Speech disorder [Recovering/Resolving]

NARRATIVE: CASE EVENT DATE: 20200526
